FAERS Safety Report 21141887 (Version 1)
Quarter: 2022Q3

REPORT INFORMATION
  Report Type: Spontaneous
  Country: US (occurrence: None)
  Receive Date: 20220727
  Receipt Date: 20220727
  Transmission Date: 20221026
  Serious: Yes (Other)
  Sender: FDA-Public Use
  Company Number: None

PATIENT
  Age: 41 Year
  Sex: Male

DRUGS (1)
  1. SUBLOCADE [Suspect]
     Active Substance: BUPRENORPHINE
     Indication: Drug use disorder
     Dosage: OTHER FREQUENCY : MONTHLY;?
     Route: 058
     Dates: start: 20220618, end: 20220725

REACTIONS (1)
  - Injection site infection [None]

NARRATIVE: CASE EVENT DATE: 20220618
